FAERS Safety Report 5672434-9 (Version None)
Quarter: 2008Q1

REPORT INFORMATION
  Report Type: 
  Country: None (occurrence: None)
  Receive Date: 20080318
  Receipt Date: 20080318
  Transmission Date: 20080703
  Serious: Yes (Hospitalization)
  Sender: FDA-Public Use
  Company Number: None

PATIENT
  Age: 53 Year
  Sex: Male

DRUGS (2)
  1. CLOPIDOGREL [Suspect]
  2. ASPIRIN [Suspect]

REACTIONS (1)
  - LOWER GASTROINTESTINAL HAEMORRHAGE [None]
